FAERS Safety Report 4639248-X (Version None)
Quarter: 2005Q2

REPORT INFORMATION
  Report Type: 
  Country: None (occurrence: None)
  Receive Date: 20050419
  Receipt Date: 20050328
  Transmission Date: 20051028
  Serious: Yes (Hospitalization)
  Sender: FDA-Public Use
  Company Number: JP-SANOFI-SYNTHELABO-A01200501908

PATIENT
  Age: 86 Year
  Sex: Female

DRUGS (2)
  1. MYSLEE [Suspect]
     Indication: INSOMNIA
     Route: 048
     Dates: start: 20050323, end: 20050323
  2. BROACT [Concomitant]
     Indication: BRONCHOPNEUMONIA
     Dosage: 2 G
     Route: 048
     Dates: start: 20050322

REACTIONS (5)
  - COMA [None]
  - PULMONARY HAEMORRHAGE [None]
  - RESPIRATORY DEPRESSION [None]
  - UNRESPONSIVE TO PAIN STIMULI [None]
  - URINARY INCONTINENCE [None]
